FAERS Safety Report 9431986 (Version 1)
Quarter: 2013Q3

REPORT INFORMATION
  Report Type: Spontaneous
  Country: AR (occurrence: AR)
  Receive Date: 20130731
  Receipt Date: 20130731
  Transmission Date: 20140515
  Serious: Yes (Other)
  Sender: FDA-Public Use
  Company Number: AR-JNJFOC-20130713979

PATIENT
  Age: 82 Year
  Sex: Female

DRUGS (5)
  1. XARELTO [Suspect]
     Indication: PRODUCT USED FOR UNKNOWN INDICATION
     Route: 048
     Dates: end: 20130717
  2. REDUCTEROL [Concomitant]
     Route: 065
  3. FUROSEMIDE [Concomitant]
     Route: 065
  4. ZOLPIDEM TARTRATE [Concomitant]
     Route: 048
  5. PREGABALIN [Concomitant]
     Route: 065

REACTIONS (2)
  - Gingival bleeding [Recovering/Resolving]
  - Petechiae [Recovering/Resolving]
